FAERS Safety Report 8940679 (Version 1)
Quarter: 2012Q4

REPORT INFORMATION
  Report Type: 
  Country: GB (occurrence: GB)
  Receive Date: 20121203
  Receipt Date: 20121203
  Transmission Date: 20130627
  Serious: Yes (Other)
  Sender: FDA-Public Use
  Company Number: GB-ASTRAZENECA-2012SE89051

PATIENT
  Age: 27028 Day
  Sex: Female

DRUGS (7)
  1. WARFARIN [Suspect]
     Indication: COAGULATION TIME ABNORMAL
     Route: 065
  2. SPRAY [Concomitant]
     Indication: ASTHMA
  3. GLICLAZIDE [Suspect]
     Indication: ANXIETY
     Route: 048
  4. LISINOPRIL [Suspect]
     Indication: BLOOD PRESSURE
     Route: 048
  5. ALLOPURINOL [Suspect]
     Indication: GOUT
     Route: 065
  6. FUROSEMIDE [Suspect]
     Indication: FLUID RETENTION
     Route: 065
  7. SIMVASTATIN [Suspect]
     Indication: BLOOD CHOLESTEROL INCREASED
     Route: 065
     Dates: end: 20121103

REACTIONS (3)
  - Face oedema [Not Recovered/Not Resolved]
  - Malaise [Not Recovered/Not Resolved]
  - Hot flush [Not Recovered/Not Resolved]
